FAERS Safety Report 9206531 (Version 1)
Quarter: 2013Q2

REPORT INFORMATION
  Report Type: Spontaneous
  Country: MX (occurrence: MX)
  Receive Date: 20130403
  Receipt Date: 20130403
  Transmission Date: 20140414
  Serious: Yes (Death, Other)
  Sender: FDA-Public Use
  Company Number: PHHY2013MX031661

PATIENT
  Age: 57 Year
  Sex: Female

DRUGS (8)
  1. GALVUS MET [Suspect]
     Indication: DIABETES MELLITUS
     Dosage: 1 DF, EVERY DAY
     Route: 048
     Dates: start: 2010
  2. EXFORGE [Suspect]
     Indication: HYPERTENSION
     Dosage: 1 DF, DAILY (VALS 160 MG, AMLO 10 MG)
     Route: 048
     Dates: start: 201001
  3. EXFORGE [Suspect]
     Dosage: 2 DF, (VAL 160MG, AMLO 10MG)
     Route: 048
     Dates: start: 201206
  4. CEFIXIME [Concomitant]
     Dosage: 2 DF, DAILY
     Dates: start: 201206
  5. RENAGEL [Concomitant]
     Dosage: 1 DF, DAILY
     Dates: start: 201301
  6. MINODIAB [Concomitant]
     Dosage: 1 DF, DAILY
     Dates: start: 201301
  7. CALTRATE [Concomitant]
     Dosage: UNK UKN, UNK
     Dates: start: 201211
  8. CONCOR [Concomitant]
     Dosage: 1 DF, DAILY
     Dates: start: 201301

REACTIONS (4)
  - Myocardial infarction [Fatal]
  - Angina pectoris [Fatal]
  - Renal failure [Fatal]
  - Haemoglobin decreased [Recovered/Resolved]
